FAERS Safety Report 7451570-0 (Version None)
Quarter: 2011Q2

REPORT INFORMATION
  Report Type: 
  Country: None (occurrence: None)
  Receive Date: 20110502
  Receipt Date: 20100402
  Transmission Date: 20111010
  Serious: No
  Sender: FDA-Public Use
  Company Number: US-ASTRAZENECA-2010SE14675

PATIENT
  Age: 64 Year
  Sex: Female
  Weight: 59 kg

DRUGS (6)
  1. PREDNISONE [Concomitant]
  2. PLAQUENIL [Concomitant]
     Indication: ARTHRITIS
  3. NEURONTIN [Concomitant]
     Indication: HERPES ZOSTER
  4. ARIMIDEX [Concomitant]
     Indication: BREAST CANCER
  5. NEXIUM [Suspect]
     Indication: GASTROOESOPHAGEAL REFLUX DISEASE
     Route: 048
     Dates: start: 20100301
  6. CARDIZEM [Concomitant]
     Indication: ATRIAL FIBRILLATION

REACTIONS (5)
  - WHEEZING [None]
  - WEIGHT DECREASED [None]
  - EATING DISORDER [None]
  - CHEST PAIN [None]
  - DYSPNOEA [None]
